FAERS Safety Report 5409599-X (Version None)
Quarter: 2007Q3

REPORT INFORMATION
  Report Type: 
  Country: None (occurrence: None)
  Receive Date: 20070807
  Receipt Date: 20070807
  Transmission Date: 20080115
  Serious: Yes (Hospitalization)
  Sender: FDA-Public Use
  Company Number: None

PATIENT
  Age: 59 Year
  Sex: Female
  Weight: 57.1532 kg

DRUGS (12)
  1. CETUXIMAB [Suspect]
     Indication: PANCREATIC CARCINOMA
     Dosage: 400 MG/M2; 250 MG/M2
     Dates: start: 20070709, end: 20070730
  2. CETUXIMAB [Suspect]
     Indication: PANCREATIC CARCINOMA
     Dosage: 400 MG/M2; 250 MG/M2
     Dates: start: 20070702
  3. GEMCITABINE HCL [Suspect]
     Indication: PANCREATIC CARCINOMA
     Dosage: 234 MG IV; 176 MG IV
     Route: 042
     Dates: start: 20070709
  4. GEMCITABINE HCL [Suspect]
     Indication: PANCREATIC CARCINOMA
     Dosage: 234 MG IV; 176 MG IV
     Route: 042
     Dates: start: 20070716
  5. GEMCITABINE HCL [Suspect]
     Indication: PANCREATIC CARCINOMA
     Dosage: 234 MG IV; 176 MG IV
     Route: 042
     Dates: start: 20070723
  6. GEMCITABINE HCL [Suspect]
     Indication: PANCREATIC CARCINOMA
     Dosage: 234 MG IV; 176 MG IV
     Route: 042
     Dates: start: 20070730
  7. PROTONIX [Concomitant]
  8. PANCREASE NT [Concomitant]
  9. DEXAMETHASONE 0.5MG TAB [Concomitant]
  10. FOSAMAX [Concomitant]
  11. METFORMIN HCL [Concomitant]
  12. MGOXIDE [Concomitant]

REACTIONS (6)
  - ABDOMINAL PAIN [None]
  - DIARRHOEA [None]
  - MUSCLE SPASMS [None]
  - NAUSEA [None]
  - PLATELET COUNT DECREASED [None]
  - VOMITING [None]
